FAERS Safety Report 4976503-8 (Version None)
Quarter: 2006Q2

REPORT INFORMATION
  Report Type: 
  Country: None (occurrence: None)
  Receive Date: 20060412
  Receipt Date: 20060327
  Transmission Date: 20061013
  Serious: Yes (Other)
  Sender: FDA-Public Use
  Company Number: 2006BI004726

PATIENT
  Sex: Female

DRUGS (3)
  1. AVONEX [Suspect]
     Indication: MULTIPLE SCLEROSIS
     Dosage: IM
     Route: 030
     Dates: start: 20030101, end: 20050901
  2. COPAXONE [Concomitant]
  3. NOVANTRONE [Concomitant]

REACTIONS (3)
  - BONE NEOPLASM MALIGNANT [None]
  - CARDIAC DISORDER [None]
  - RENAL FAILURE [None]
